FAERS Safety Report 7629951-1 (Version None)
Quarter: 2011Q3

REPORT INFORMATION
  Report Type: 
  Country: None (occurrence: None)
  Receive Date: 20110722
  Receipt Date: 20110712
  Transmission Date: 20111222
  Serious: Yes (Other)
  Sender: FDA-Public Use
  Company Number: VE-BRISTOL-MYERS SQUIBB COMPANY-15902810

PATIENT
  Age: 59 Year
  Sex: Female

DRUGS (4)
  1. CYTARABINE [Concomitant]
     Indication: ACUTE LYMPHOCYTIC LEUKAEMIA
     Dosage: 7JUN11 500 UNITS NOS
     Route: 042
     Dates: start: 20100801, end: 20110607
  2. SPRYCEL [Suspect]
     Indication: ACUTE LYMPHOCYTIC LEUKAEMIA
     Dosage: 2 CAPSULES  THERAPY DATES:24MAR11(7MONTHS) 7JUN11 100MG FOR 10MONTHS 100MG/D
     Dates: start: 20100817
  3. FLUDARA [Concomitant]
     Indication: ACUTE LYMPHOCYTIC LEUKAEMIA
     Dosage: 7JUN11 50MG
     Route: 042
     Dates: start: 20100801, end: 20110607
  4. IDARUBICIN HCL [Concomitant]
     Indication: ACUTE LYMPHOCYTIC LEUKAEMIA
     Route: 042
     Dates: start: 20100801, end: 20110607

REACTIONS (4)
  - DIARRHOEA [None]
  - OEDEMA PERIPHERAL [None]
  - MUSCULOSKELETAL PAIN [None]
  - PARAESTHESIA [None]
